FAERS Safety Report 4392003-0 (Version None)
Quarter: 2004Q3

REPORT INFORMATION
  Report Type: 
  Country: None (occurrence: None)
  Receive Date: 20040701
  Receipt Date: 20040616
  Transmission Date: 20050211
  Serious: Yes (Hospitalization)
  Sender: FDA-Public Use
  Company Number: USA040670264

PATIENT
  Age: 88 Year
  Sex: Female
  Weight: 65 kg

DRUGS (1)
  1. HUMULIN-HUMAN INSULIN (RDNA) :30% REGULAR, 70% NPH (H [Suspect]
     Indication: DIABETES MELLITUS
     Dosage: 28 U DAY

REACTIONS (3)
  - BLOOD GLUCOSE INCREASED [None]
  - DIVERTICULITIS [None]
  - PHARMACEUTICAL PRODUCT COMPLAINT [None]
